FAERS Safety Report 7357976-2 (Version None)
Quarter: 2011Q1

REPORT INFORMATION
  Report Type: 
  Country: None (occurrence: None)
  Receive Date: 20110317
  Receipt Date: 20110308
  Transmission Date: 20110831
  Serious: Yes (Hospitalization)
  Sender: FDA-Public Use
  Company Number: US-AMGEN-USASP2011013022

PATIENT
  Age: 12 Year
  Sex: Male

DRUGS (1)
  1. ENBREL [Suspect]
     Indication: JUVENILE ARTHRITIS
     Dosage: 25 MG, QWK
     Dates: end: 20110305

REACTIONS (9)
  - HEPATIC ENZYME INCREASED [None]
  - RASH [None]
  - LYMPHADENOPATHY [None]
  - BIPOLAR DISORDER [None]
  - ALANINE AMINOTRANSFERASE ABNORMAL [None]
  - ARTHRALGIA [None]
  - STOMATITIS [None]
  - OROPHARYNGEAL PAIN [None]
  - PYREXIA [None]
